FAERS Safety Report 5738416-3 (Version None)
Quarter: 2008Q2

REPORT INFORMATION
  Report Type: 
  Country: None (occurrence: None)
  Receive Date: 20080513
  Receipt Date: 20080505
  Transmission Date: 20081010
  Serious: Yes (Hospitalization, Other)
  Sender: FDA-Public Use
  Company Number: 2008SP005455

PATIENT
  Age: 60 Year
  Sex: Female
  Weight: 154.4 kg

DRUGS (3)
  1. EPTIFIBATIDE (S-P) [Suspect]
     Indication: CORONARY ARTERY THROMBOSIS
     Dosage: 2 MCG;KG/IV
     Route: 042
     Dates: start: 20080303, end: 20080304
  2. CLOPIDOGREL [Suspect]
     Indication: PERCUTANEOUS CORONARY INTERVENTION
     Dates: start: 20080303
  3. BIVALIRUDIN [Concomitant]

REACTIONS (2)
  - ANGIOEDEMA [None]
  - DYSPHAGIA [None]
